FAERS Safety Report 20759191 (Version 1)
Quarter: 2022Q2

REPORT INFORMATION
  Report Type: Spontaneous
  Country: US (occurrence: US)
  Receive Date: 20220427
  Receipt Date: 20220427
  Transmission Date: 20220720
  Serious: No
  Sender: FDA-Public Use
  Company Number: US-BioHaven Pharmaceuticals-2022BHV000027

PATIENT
  Age: 55 Year

DRUGS (1)
  1. NURTEC ODT [Suspect]
     Active Substance: RIMEGEPANT SULFATE
     Indication: Migraine
     Dosage: DOCTORS SAMPLE WAS RECEIVED ON 16NOV2021; PATIENT TOOK A TOTAL OF 4 NURTEC TABLETS ON UNSPECIFIED DA
     Route: 065
     Dates: start: 2021, end: 2021

REACTIONS (4)
  - Vomiting [Unknown]
  - Drug ineffective [Unknown]
  - Nausea [Unknown]
  - Abdominal pain upper [Unknown]
